FAERS Safety Report 9065736 (Version 1)
Quarter: 2013Q1

REPORT INFORMATION
  Report Type: Spontaneous
  Country: US (occurrence: US)
  Receive Date: 20130131
  Receipt Date: 20130131
  Transmission Date: 20140127
  Serious: No
  Sender: FDA-Public Use
  Company Number: US-ABBOTT-12P-163-1023518-00

PATIENT
  Age: 78 None
  Sex: Male
  Weight: 69.01 kg

DRUGS (14)
  1. HUMIRA [Suspect]
     Indication: RHEUMATOID ARTHRITIS
  2. METHOTREXATE [Concomitant]
     Indication: RHEUMATOID ARTHRITIS
  3. ALENDRONATE [Concomitant]
     Indication: OSTEOPOROSIS
  4. FENOFIBRATE [Concomitant]
     Indication: BLOOD CHOLESTEROL INCREASED
  5. METOPROLOL [Concomitant]
     Indication: HYPERTENSION
  6. LISINOPRIL [Concomitant]
     Indication: HYPERTENSION
  7. FOLIC ACID [Concomitant]
     Indication: RHEUMATOID ARTHRITIS
  8. AMLODIPINE [Concomitant]
     Indication: HYPERTENSION
  9. VITAMIN D NOS [Concomitant]
     Indication: SUPPLEMENTATION THERAPY
  10. ZETRID [Concomitant]
     Indication: GASTROOESOPHAGEAL REFLUX PROPHYLAXIS
  11. ASPIRIN [Concomitant]
     Indication: CARDIOVASCULAR EVENT PROPHYLAXIS
  12. TYLENOL [Concomitant]
     Indication: PAIN
  13. VITAMIN B [Concomitant]
     Indication: SUPPLEMENTATION THERAPY
  14. SAM-E [Concomitant]
     Indication: SUPPLEMENTATION THERAPY

REACTIONS (3)
  - Rash macular [Recovered/Resolved]
  - Rash macular [Recovered/Resolved]
  - Tenderness [Not Recovered/Not Resolved]
